FAERS Safety Report 9796849 (Version 3)
Quarter: 2014Q3

REPORT INFORMATION
  Report Type: Spontaneous
  Country: FR (occurrence: FR)
  Receive Date: 20140103
  Receipt Date: 20140715
  Transmission Date: 20150326
  Serious: Yes (Life-Threatening, Hospitalization, Other)
  Sender: FDA-Public Use
  Company Number: FR-ABBVIE-13P-056-1184288-00

PATIENT
  Age: 39 Year
  Sex: Male
  Weight: 45 kg

DRUGS (12)
  1. NORVIR [Suspect]
     Active Substance: RITONAVIR
     Indication: HIV INFECTION
     Dates: start: 20120928
  2. RETROVIR [Suspect]
     Active Substance: ZIDOVUDINE
     Dates: start: 20120928, end: 20131213
  3. DOLUTEGRAVIR [Suspect]
     Active Substance: DOLUTEGRAVIR
     Indication: HIV INFECTION
     Dates: start: 20120928
  4. ETHAMBUTOL [Suspect]
     Active Substance: ETHAMBUTOL HYDROCHLORIDE
     Indication: MYCOBACTERIUM AVIUM COMPLEX INFECTION
     Dates: start: 20120104
  5. IZILOX [Suspect]
     Active Substance: MOXIFLOXACIN HYDROCHLORIDE
     Indication: PRODUCT USED FOR UNKNOWN INDICATION
     Dates: start: 20120104
  6. AZT [Suspect]
     Active Substance: ZIDOVUDINE
     Indication: HIV INFECTION
     Dates: start: 20120928, end: 20131213
  7. RETROVIR [Suspect]
     Active Substance: ZIDOVUDINE
     Indication: HIV INFECTION
     Dates: end: 201011
  8. RETROVIR [Suspect]
     Active Substance: ZIDOVUDINE
     Dates: start: 20140117, end: 20140321
  9. CLARITHROMYCINE (ZECLAR) [Suspect]
     Active Substance: CLARITHROMYCIN
     Indication: MYCOBACTERIUM AVIUM COMPLEX INFECTION
     Dates: start: 20120104
  10. PREZISTA [Suspect]
     Active Substance: DARUNAVIR ETHANOLATE
     Indication: HIV INFECTION
     Route: 048
     Dates: start: 20120928
  11. WELLVONE [Suspect]
     Active Substance: ATOVAQUONE
     Indication: OPPORTUNISTIC INFECTION PROPHYLAXIS
     Dates: start: 20090404
  12. WELLVONE [Suspect]
     Active Substance: ATOVAQUONE
     Indication: ACQUIRED IMMUNODEFICIENCY SYNDROME

REACTIONS (7)
  - Investigation [Unknown]
  - Blood disorder [Unknown]
  - Lymphopenia [Recovered/Resolved]
  - Drug intolerance [Unknown]
  - Thrombocytopenia [Recovered/Resolved]
  - Anaemia [Recovering/Resolving]
  - Leukopenia [Recovered/Resolved]

NARRATIVE: CASE EVENT DATE: 2013
